FAERS Safety Report 9879099 (Version 2)
Quarter: 2014Q1

REPORT INFORMATION
  Report Type: Report from Study
  Country: SK (occurrence: SK)
  Receive Date: 20140206
  Receipt Date: 20140224
  Transmission Date: 20141002
  Serious: Yes (Hospitalization, Other)
  Sender: FDA-Public Use
  Company Number: SK-ELI_LILLY_AND_COMPANY-SK201401010104

PATIENT
  Age: 47 Year
  Sex: Female
  Weight: 59 kg

DRUGS (4)
  1. OLANZAPINE LONG-ACTING IM [Suspect]
     Indication: SCHIZOPHRENIA
     Dosage: 405 MG, EVERY FOUR WEEKS
     Route: 030
     Dates: start: 20110411
  2. OLANZAPINE LONG-ACTING IM [Suspect]
     Dosage: 300 MG, UNK
     Route: 030
     Dates: start: 20140122
  3. BISOPROLOL [Concomitant]
     Indication: HYPERTENSION
     Dosage: UNK
     Route: 065
     Dates: start: 20131008
  4. INDAPAMIDE W/PERINDOPRIL [Concomitant]
     Indication: HYPERTENSION
     Dosage: UNK
     Route: 065
     Dates: start: 20131008

REACTIONS (4)
  - Schizophrenia [Recovering/Resolving]
  - Sedation [Recovered/Resolved]
  - Confusional state [Recovered/Resolved]
  - Akathisia [Recovered/Resolved]
